FAERS Safety Report 18037237 (Version 1)
Quarter: 2020Q3

REPORT INFORMATION
  Report Type: Report from Study
  Country: US (occurrence: US)
  Receive Date: 20200717
  Receipt Date: 20200717
  Transmission Date: 20201103
  Serious: Yes (Hospitalization)
  Sender: FDA-Public Use
  Company Number: US-EISAI MEDICAL RESEARCH-EC-2020-077516

PATIENT
  Age: 76 Year
  Sex: Male

DRUGS (1)
  1. LENVIMA [Suspect]
     Active Substance: LENVATINIB
     Indication: HEPATIC CANCER
     Route: 048
     Dates: start: 20200708, end: 20200713

REACTIONS (7)
  - Asthenia [Not Recovered/Not Resolved]
  - Incoherent [Not Recovered/Not Resolved]
  - Renal failure [Not Recovered/Not Resolved]
  - Bedridden [Not Recovered/Not Resolved]
  - Constipation [Not Recovered/Not Resolved]
  - Ammonia increased [Not Recovered/Not Resolved]
  - Gait inability [Not Recovered/Not Resolved]

NARRATIVE: CASE EVENT DATE: 202007
